FAERS Safety Report 25814662 (Version 1)
Quarter: 2025Q3

REPORT INFORMATION
  Report Type: Report from Study
  Country: US (occurrence: US)
  Receive Date: 20250917
  Receipt Date: 20250917
  Transmission Date: 20251020
  Serious: Yes (Other)
  Sender: ABBVIE
  Company Number: US-ABBVIE-6461862

PATIENT
  Age: 61 Year
  Sex: Female

DRUGS (1)
  1. RISANKIZUMAB [Suspect]
     Active Substance: RISANKIZUMAB
     Indication: Product used for unknown indication
     Route: 058
     Dates: start: 20210521

REACTIONS (3)
  - Foot fracture [Recovering/Resolving]
  - Lisfranc fracture [Recovering/Resolving]
  - Fall [Unknown]

NARRATIVE: CASE EVENT DATE: 20250804
